FAERS Safety Report 12876757 (Version 2)
Quarter: 2018Q3

REPORT INFORMATION
  Report Type: Report from Study
  Country: US (occurrence: US)
  Receive Date: 20161024
  Receipt Date: 20180919
  Transmission Date: 20181010
  Serious: Yes (Hospitalization, Other)
  Sender: FDA-Public Use
  Company Number: US-JNJFOC-20161019027

PATIENT
  Sex: Male

DRUGS (14)
  1. OMEPRAZOLE. [Concomitant]
     Active Substance: OMEPRAZOLE
  2. GALANTAMINE. [Concomitant]
     Active Substance: GALANTAMINE
  3. CLONAZEPAM. [Concomitant]
     Active Substance: CLONAZEPAM
  4. VENLAFAXINE [Concomitant]
     Active Substance: VENLAFAXINE HYDROCHLORIDE
     Route: 065
  5. MUCINEX DM [Concomitant]
     Active Substance: DEXTROMETHORPHAN HYDROBROMIDE\GUAIFENESIN
  6. PRESERVISION AREDS [Concomitant]
     Active Substance: MINERALS\VITAMINS
  7. LIDOCAINE. [Concomitant]
     Active Substance: LIDOCAINE
  8. CEFTIN [Concomitant]
     Active Substance: CEFUROXIME AXETIL
  9. BENZONATATE. [Concomitant]
     Active Substance: BENZONATATE
  10. CARAFATE [Concomitant]
     Active Substance: SUCRALFATE
  11. IMBRUVICA [Suspect]
     Active Substance: IBRUTINIB
     Indication: NON-HODGKIN^S LYMPHOMA
     Route: 048
     Dates: start: 20160714
  12. VENTOLIN [Concomitant]
     Active Substance: ALBUTEROL SULFATE
  13. PRAVACHOL [Concomitant]
     Active Substance: PRAVASTATIN SODIUM
  14. METOPROLOL. [Concomitant]
     Active Substance: METOPROLOL

REACTIONS (2)
  - Macular degeneration [Unknown]
  - Infection [Unknown]
